FAERS Safety Report 18390778 (Version 2)
Quarter: 2020Q4

REPORT INFORMATION
  Report Type: Report from Study
  Country: None (occurrence: US)
  Receive Date: 20201016
  Receipt Date: 20201019
  Transmission Date: 20210114
  Serious: Yes (Other)
  Sender: FDA-Public Use
  Company Number: US-ABBVIE-20K-163-3562221-00

PATIENT
  Age: 76 Year
  Sex: Male

DRUGS (3)
  1. IMBRUVICA [Suspect]
     Active Substance: IBRUTINIB
     Route: 048
     Dates: start: 20200723
  2. IMBRUVICA [Suspect]
     Active Substance: IBRUTINIB
     Indication: CHRONIC LYMPHOCYTIC LEUKAEMIA
     Route: 048
  3. IMBRUVICA [Suspect]
     Active Substance: IBRUTINIB
     Route: 048
     Dates: start: 20200721

REACTIONS (16)
  - Asthenia [Unknown]
  - Nausea [Not Recovered/Not Resolved]
  - Illness [Unknown]
  - Haemoptysis [Unknown]
  - Respiratory tract congestion [Unknown]
  - Gait disturbance [Unknown]
  - Cough [Unknown]
  - Dyspepsia [Unknown]
  - Skin discolouration [Unknown]
  - Contusion [Not Recovered/Not Resolved]
  - Fatigue [Not Recovered/Not Resolved]
  - Vomiting [Unknown]
  - Vascular rupture [Not Recovered/Not Resolved]
  - Muscle atrophy [Unknown]
  - Scab [Not Recovered/Not Resolved]
  - Taste disorder [Unknown]

NARRATIVE: CASE EVENT DATE: 2020
